FAERS Safety Report 17056994 (Version 3)
Quarter: 2020Q1

REPORT INFORMATION
  Report Type: Spontaneous
  Country: US (occurrence: US)
  Receive Date: 20191121
  Receipt Date: 20200113
  Transmission Date: 20200409
  Serious: Yes (Other)
  Sender: FDA-Public Use
  Company Number: US-SA-2019SA320291

PATIENT
  Age: 76 Year
  Sex: Female

DRUGS (1)
  1. ENOXAPARIN SODIUM - WINTHROP [Suspect]
     Active Substance: ENOXAPARIN SODIUM
     Dosage: 80 MG, BID
     Route: 065

REACTIONS (5)
  - Injection site pain [Unknown]
  - Burning sensation [Unknown]
  - Syringe issue [Unknown]
  - Renal cancer [Unknown]
  - Thrombosis [Unknown]
